FAERS Safety Report 8111885-X (Version None)
Quarter: 2012Q1

REPORT INFORMATION
  Report Type: 
  Country: None (occurrence: None)
  Receive Date: 20120203
  Receipt Date: 20120126
  Transmission Date: 20120608
  Serious: Yes (Hospitalization)
  Sender: FDA-Public Use
  Company Number: JP-JNJFOC-20120100088

PATIENT
  Sex: Female
  Weight: 47 kg

DRUGS (20)
  1. FENTANYL CITRATE [Suspect]
     Dosage: ONCE A DAY
     Route: 062
     Dates: start: 20111222, end: 20111230
  2. TRAMADOL HYDROCHLORIDE AND ACETAMINOPHEN [Suspect]
     Dosage: TWICE A DAY
     Route: 048
     Dates: start: 20111130, end: 20111130
  3. NOVAMIN [Concomitant]
     Dosage: THRICE A DAY
     Route: 048
     Dates: start: 20111219, end: 20111220
  4. MAGMITT [Concomitant]
     Indication: CONSTIPATION
     Dosage: THRICE A DAY
     Route: 048
     Dates: start: 20111221, end: 20111229
  5. DEPAS [Concomitant]
     Dosage: AS PER NECESSARY
     Route: 048
     Dates: start: 20111231
  6. FENTANYL CITRATE [Suspect]
     Dosage: ONCE A DAY
     Route: 062
     Dates: start: 20111214, end: 20111221
  7. TRAMADOL HYDROCHLORIDE AND ACETAMINOPHEN [Suspect]
     Dosage: 4 TIMES A DAY
     Route: 048
     Dates: end: 20111129
  8. MAGMITT [Concomitant]
     Dosage: TWICE A DAY
     Route: 048
     Dates: start: 20111230
  9. UNKNOWN MEDICATION [Concomitant]
     Dosage: ONCE A DAY
     Route: 042
     Dates: start: 20111231, end: 20120104
  10. FENTANYL CITRATE [Suspect]
     Indication: PAIN
     Dosage: ONCE A DAY
     Route: 062
     Dates: start: 20111130, end: 20111213
  11. TRAMADOL HYDROCHLORIDE AND ACETAMINOPHEN [Suspect]
     Dosage: ONCE A DAY
     Route: 048
     Dates: start: 20120118
  12. FAMOTIDINE [Concomitant]
     Indication: GASTRITIS
     Dosage: TWICE A DAY
     Route: 048
     Dates: end: 20120104
  13. TRAMADOL HYDROCHLORIDE AND ACETAMINOPHEN [Suspect]
     Dosage: 4 TIMES A DAY
     Route: 048
     Dates: start: 20111231, end: 20120105
  14. LOXONIN [Concomitant]
     Indication: PAIN
     Dosage: ONCE A DAY
     Route: 062
  15. NOVAMIN [Concomitant]
     Dosage: AS PER NECESSARY
     Route: 048
     Dates: start: 20111227, end: 20111229
  16. FAMOTIDINE [Concomitant]
     Indication: GASTRITIS
     Dosage: TWICE A DAY
     Route: 048
     Dates: start: 20120105
  17. TRAMADOL HYDROCHLORIDE AND ACETAMINOPHEN [Suspect]
     Indication: PAIN
     Dosage: ONCE A DAY
     Route: 048
     Dates: start: 20120111, end: 20120117
  18. NOVAMIN [Concomitant]
     Dosage: 4 TIMES A DAY
     Route: 048
     Dates: start: 20111221, end: 20111226
  19. MAGMITT [Concomitant]
     Dosage: TWICE A DAY
     Route: 048
     Dates: end: 20111220
  20. ZOLPIDEM [Concomitant]
     Dosage: ONCE A DAY
     Route: 048
     Dates: start: 20111228

REACTIONS (1)
  - ADJUSTMENT DISORDER [None]
